FAERS Safety Report 4414803-0 (Version None)
Quarter: 2004Q3

REPORT INFORMATION
  Report Type: 
  Country: None (occurrence: None)
  Receive Date: 20040804
  Receipt Date: 20031017
  Transmission Date: 20050211
  Serious: No
  Sender: FDA-Public Use
  Company Number: US-BRISTOL-MYERS SQUIBB COMPANY-12413548

PATIENT
  Age: 58 Year
  Sex: Female
  Weight: 63 kg

DRUGS (3)
  1. GLUCOVANCE [Suspect]
     Indication: DIABETES MELLITUS NON-INSULIN-DEPENDENT
     Dosage: DOSAGE FORM = TABLET (5MG/500MG PER TABLET)
     Route: 048
  2. ASPIRIN [Concomitant]
     Dosage: ^SMALL DOSE^
  3. TYLENOL [Concomitant]

REACTIONS (1)
  - HYPOAESTHESIA [None]
